FAERS Safety Report 8384382-4 (Version None)
Quarter: 2012Q2

REPORT INFORMATION
  Report Type: 
  Country: None (occurrence: None)
  Receive Date: 20120524
  Receipt Date: 20120517
  Transmission Date: 20120825
  Serious: Yes (Hospitalization)
  Sender: FDA-Public Use
  Company Number: US-GLAXOSMITHKLINE-A0888747A

PATIENT
  Age: 58 Year
  Sex: Male
  Weight: 93.6 kg

DRUGS (1)
  1. AVANDARYL [Suspect]
     Indication: DIABETES MELLITUS
     Route: 048
     Dates: start: 20070601, end: 20090801

REACTIONS (2)
  - ISCHAEMIC STROKE [None]
  - CEREBROVASCULAR ACCIDENT [None]
